FAERS Safety Report 21563447 (Version 1)
Quarter: 2022Q4

REPORT INFORMATION
  Report Type: Spontaneous
  Country: CA (occurrence: CA)
  Receive Date: 20221108
  Receipt Date: 20221108
  Transmission Date: 20230112
  Serious: Yes (Other)
  Sender: FDA-Public Use
  Company Number: CA-JNJFOC-20221109258

PATIENT
  Age: 69 Year
  Sex: Female
  Weight: 65 kg

DRUGS (8)
  1. REMICADE [Suspect]
     Active Substance: INFLIXIMAB
     Indication: Colitis ulcerative
     Route: 042
  2. DETROL [Concomitant]
     Active Substance: TOLTERODINE TARTRATE
  3. IBUPROFEN [Concomitant]
     Active Substance: IBUPROFEN
  4. MAGNESIUM [Concomitant]
     Active Substance: MAGNESIUM
  5. METHOTREXATE [Concomitant]
     Active Substance: METHOTREXATE
     Route: 065
  6. HERBALS\PLANTAGO INDICA WHOLE [Concomitant]
     Active Substance: HERBALS\PLANTAGO INDICA WHOLE
  7. PREDNISONE [Concomitant]
     Active Substance: PREDNISONE
  8. CHOLECALCIFEROL [Concomitant]
     Active Substance: CHOLECALCIFEROL

REACTIONS (2)
  - Basal cell carcinoma [Unknown]
  - Off label use [Unknown]
